FAERS Safety Report 17934187 (Version 1)
Quarter: 2020Q2

REPORT INFORMATION
  Report Type: Spontaneous
  Country: IT (occurrence: IT)
  Receive Date: 20200623
  Receipt Date: 20200623
  Transmission Date: 20200714
  Serious: Yes (Other)
  Sender: FDA-Public Use
  Company Number: IT-AMGEN-ITASP2020097180

PATIENT

DRUGS (10)
  1. REPAGLINIDE. [Concomitant]
     Active Substance: REPAGLINIDE
  2. PROLIA [Suspect]
     Active Substance: DENOSUMAB
     Indication: OSTEOPOROSIS
     Dosage: 60 MILLIGRAM, Q6MO
     Route: 058
  3. PROLIA [Suspect]
     Active Substance: DENOSUMAB
     Indication: ACROMEGALY
  4. CORTISONE ACETATE. [Concomitant]
     Active Substance: CORTISONE ACETATE
  5. INSULIN [Concomitant]
     Active Substance: INSULIN NOS
  6. HYDROCORTISONE. [Concomitant]
     Active Substance: HYDROCORTISONE
  7. PEGVISOMANT [Concomitant]
     Active Substance: PEGVISOMANT
  8. VITAMIN D3 [Concomitant]
     Active Substance: CHOLECALCIFEROL
     Dosage: 800 TO 4000 UNITS, QD
  9. CALCIUM [Concomitant]
     Active Substance: CALCIUM
     Dosage: 500 AND 1200 MILLIGRAM
  10. METFORMIN [Concomitant]
     Active Substance: METFORMIN HYDROCHLORIDE

REACTIONS (1)
  - Spinal fracture [Unknown]
